FAERS Safety Report 8422737-X (Version None)
Quarter: 2012Q2

REPORT INFORMATION
  Report Type: 
  Country: None (occurrence: None)
  Receive Date: 20120608
  Receipt Date: 20120529
  Transmission Date: 20120825
  Serious: Yes (Other)
  Sender: FDA-Public Use
  Company Number: US-BRISTOL-MYERS SQUIBB COMPANY-16642126

PATIENT
  Age: 32 Year
  Sex: Female
  Weight: 45 kg

DRUGS (4)
  1. ORENCIA [Suspect]
     Indication: RHEUMATOID ARTHRITIS
     Dosage: LAST INF-25MAY2012
     Route: 042
     Dates: start: 20120525
  2. ULTRACET [Concomitant]
  3. METHOTREXATE [Concomitant]
  4. FOLIC ACID [Concomitant]

REACTIONS (6)
  - OVARIAN CYST RUPTURED [None]
  - DIZZINESS [None]
  - NAUSEA [None]
  - MUSCLE CONTRACTIONS INVOLUNTARY [None]
  - FATIGUE [None]
  - SOMNOLENCE [None]
